FAERS Safety Report 13741964 (Version 5)
Quarter: 2018Q3

REPORT INFORMATION
  Report Type: Spontaneous
  Country: US (occurrence: US)
  Receive Date: 20170711
  Receipt Date: 20180906
  Transmission Date: 20181010
  Serious: Yes (Other)
  Sender: FDA-Public Use
  Company Number: US-PFIZER INC-2017298945

PATIENT
  Age: 65 Year
  Sex: Female
  Weight: 60.32 kg

DRUGS (5)
  1. XELJANZ XR [Suspect]
     Active Substance: TOFACITINIB CITRATE
     Indication: RHEUMATOID ARTHRITIS
     Dosage: 11 MG, UNK
  2. XELJANZ XR [Suspect]
     Active Substance: TOFACITINIB CITRATE
     Dosage: 11 MG, 1X/DAY
     Route: 048
     Dates: start: 201606
  3. METHOTREXATE. [Concomitant]
     Active Substance: METHOTREXATE
     Dosage: 9 TABLETS WEEKLY (22.5 MG, WEEKLY)
     Dates: start: 199506
  4. XELJANZ XR [Suspect]
     Active Substance: TOFACITINIB CITRATE
     Dosage: 11 MG, 1X/DAY
     Route: 048
     Dates: start: 2016
  5. MORPHINE [Concomitant]
     Active Substance: MORPHINE
     Indication: PAIN
     Dosage: 45 MG, 2X/DAY
     Route: 048
     Dates: start: 201807

REACTIONS (4)
  - Dyspnoea [Recovered/Resolved]
  - Metastases to lung [Unknown]
  - Dry eye [Not Recovered/Not Resolved]
  - Choroid melanoma [Recovered/Resolved]

NARRATIVE: CASE EVENT DATE: 201608
